FAERS Safety Report 4650156-0 (Version None)
Quarter: 2005Q2

REPORT INFORMATION
  Report Type: 
  Country: None (occurrence: None)
  Receive Date: 20050428
  Receipt Date: 20050415
  Transmission Date: 20051028
  Serious: Yes (Other)
  Sender: FDA-Public Use
  Company Number: 2005061910

PATIENT
  Age: 76 Year
  Sex: Male

DRUGS (1)
  1. DOXAZOSIN MESYLATE [Suspect]
     Indication: BENIGN PROSTATIC HYPERPLASIA
     Dosage: 4 MG (4 M G, 1 IN 24 HR), ORAL
     Route: 048
     Dates: start: 19990501, end: 20050201

REACTIONS (2)
  - PROSTATECTOMY [None]
  - TREATMENT NONCOMPLIANCE [None]
